FAERS Safety Report 9170303 (Version 1)
Quarter: 2013Q1

REPORT INFORMATION
  Report Type: Spontaneous
  Country: US (occurrence: US)
  Receive Date: 20130319
  Receipt Date: 20130319
  Transmission Date: 20140127
  Serious: No
  Sender: FDA-Public Use
  Company Number: US-009507513-1303USA008559

PATIENT
  Sex: Female

DRUGS (2)
  1. CLARINEX-D-12 [Suspect]
     Dosage: 12 HOUR TABLET, MULTIPHASIC RELEASE 12HR
     Dates: start: 2013, end: 2013
  2. CLARINEX-D-12 [Suspect]
     Dosage: 12 HOUR TABLET, MULTIPHASIC RELEASE 12HR
     Dates: start: 2013

REACTIONS (1)
  - Sinusitis [Recovered/Resolved]
